FAERS Safety Report 16996868 (Version 2)
Quarter: 2020Q1

REPORT INFORMATION
  Report Type: Spontaneous
  Country: JP (occurrence: JP)
  Receive Date: 20191106
  Receipt Date: 20200327
  Transmission Date: 20200409
  Serious: Yes (Other)
  Sender: FDA-Public Use
  Company Number: JP-PFIZER INC-2019466531

PATIENT
  Age: 6 Decade
  Sex: Male

DRUGS (5)
  1. INSULIN [Concomitant]
     Active Substance: INSULIN NOS
     Indication: STEROID DIABETES
     Dosage: UNK
  2. MEDROL [Interacting]
     Active Substance: METHYLPREDNISOLONE
     Dosage: 8 MG, UNK
  3. MEDROL [Interacting]
     Active Substance: METHYLPREDNISOLONE
     Dosage: 16 MG, UNK
  4. ITRIZOLE [Interacting]
     Active Substance: ITRACONAZOLE
     Indication: FUNGAL INFECTION
     Dosage: UNK
  5. MEDROL [Suspect]
     Active Substance: METHYLPREDNISOLONE
     Indication: IMMUNOSUPPRESSION
     Dosage: 20 MG, UNK
     Route: 048

REACTIONS (2)
  - Blood glucose increased [Unknown]
  - Drug interaction [Unknown]
